FAERS Safety Report 9517936 (Version 2)
Quarter: 2014Q1

REPORT INFORMATION
  Report Type: Spontaneous
  Country: US (occurrence: None)
  Receive Date: 20130305
  Receipt Date: 20140306
  Transmission Date: 20141002
  Serious: Yes (Hospitalization)
  Sender: FDA-Public Use
  Company Number: 163-21880-12121116

PATIENT
  Age: 81 Year
  Sex: Male
  Weight: 90.27 kg

DRUGS (10)
  1. REVLIMID (LENALIDOMIDE) (25 MILLIGRAM, CAPSULES) [Suspect]
     Indication: PLASMA CELL MYELOMA
     Dosage: 25MG, 1 IN 1D, PO
     Route: 048
     Dates: start: 201208
  2. DEXAMETHASONE (DEXAMETHASONE) [Concomitant]
  3. FLOMAX (TAMSULOSIN HYDROCHLORIDE) [Concomitant]
  4. LASIX (FUROSEMIDE) [Concomitant]
  5. LEVOTHYROXINE (LEVOTHYROXINE) [Concomitant]
  6. AMIODARONE (AMIODARONE) [Concomitant]
  7. ASPIRIN (ACETYLSALICYLIC ACID) [Concomitant]
  8. OMEPRAZOLE (OMEPRAZOLE) [Concomitant]
  9. ZOCOR (SIMVASTATIN) [Concomitant]
  10. TOPROL XR (METOPROLOL SUCCINATE) [Concomitant]

REACTIONS (1)
  - Haemoglobin decreased [None]
